FAERS Safety Report 18474383 (Version 2)
Quarter: 2020Q4

REPORT INFORMATION
  Report Type: Spontaneous
  Country: US (occurrence: US)
  Receive Date: 20201106
  Receipt Date: 20201113
  Transmission Date: 20210114
  Serious: Yes (Hospitalization, Other)
  Sender: FDA-Public Use
  Company Number: US-PFIZER INC-2016490320

PATIENT
  Age: 63 Year
  Sex: Female
  Weight: 68.04 kg

DRUGS (2)
  1. DILANTIN [Suspect]
     Active Substance: PHENYTOIN
     Indication: SEIZURE
     Dosage: 100 MG, 3X/DAY
  2. DILANTIN [Interacting]
     Active Substance: PHENYTOIN
     Dosage: 300 MG [1 CAPSULE IN THE MORNING AND 2 AT NIGHT]

REACTIONS (6)
  - Drug interaction [Unknown]
  - Drug ineffective [Unknown]
  - Influenza [Unknown]
  - Seizure [Unknown]
  - Intentional product misuse [Unknown]
  - Illness [Unknown]

NARRATIVE: CASE EVENT DATE: 202001
